FAERS Safety Report 15104698 (Version 1)
Quarter: 2018Q3

REPORT INFORMATION
  Report Type: Spontaneous
  Country: US (occurrence: US)
  Receive Date: 20180703
  Receipt Date: 20180703
  Transmission Date: 20181010
  Serious: No
  Sender: FDA-Public Use
  Company Number: US-BAUSCH-BL-2017-029443

PATIENT
  Sex: Male

DRUGS (2)
  1. BESIVANCE [Suspect]
     Active Substance: BESIFLOXACIN
     Indication: EYE INJURY
     Dosage: STOPPED USING THE PRODUCT ON 07/OCT/2017 AND 08/OCT/2017
     Route: 047
     Dates: end: 201710
  2. BESIVANCE [Suspect]
     Active Substance: BESIFLOXACIN
     Dosage: RESUMED THE PRODUCT ON 09/OCT/2017
     Route: 047
     Dates: start: 20171009, end: 20171009

REACTIONS (4)
  - Eye irritation [Recovered/Resolved]
  - Off label use [Recovered/Resolved]
  - Eye swelling [Recovered/Resolved]
  - Eye pain [Recovered/Resolved]

NARRATIVE: CASE EVENT DATE: 20171009
